FAERS Safety Report 23490528 (Version 1)
Quarter: 2024Q1

REPORT INFORMATION
  Report Type: Spontaneous
  Country: US (occurrence: None)
  Receive Date: 20240206
  Receipt Date: 20240206
  Transmission Date: 20240410
  Serious: No
  Sender: FDA-Public Use
  Company Number: US-ROCHE-3349569

PATIENT
  Sex: Female

DRUGS (2)
  1. NUTROPIN AQ [Suspect]
     Active Substance: SOMATROPIN
     Indication: Hypopituitarism
     Dosage: DAILY, SQ
     Route: 058
     Dates: start: 202304
  2. NUTROPIN AQ [Suspect]
     Active Substance: SOMATROPIN

REACTIONS (1)
  - Peripheral swelling [Unknown]
